FAERS Safety Report 9251279 (Version 3)
Quarter: 2014Q1

REPORT INFORMATION
  Report Type: Spontaneous
  Country: US (occurrence: US)
  Receive Date: 20130424
  Receipt Date: 20140116
  Transmission Date: 20141002
  Serious: Yes (Disabling)
  Sender: FDA-Public Use
  Company Number: US-ASTRAZENECA-2013SE27333

PATIENT
  Age: 63 Year
  Sex: Female
  Weight: 91.6 kg

DRUGS (9)
  1. NEXIUM [Suspect]
     Dosage: ONCE IN A DAY
     Route: 048
     Dates: start: 2002, end: 2012
  2. NEXIUM [Suspect]
     Route: 048
     Dates: start: 2005
  3. NEXIUM [Suspect]
     Route: 048
     Dates: start: 20070718
  4. PREVACID [Concomitant]
     Dates: start: 2002, end: 2003
  5. ZANTAC [Concomitant]
     Indication: DYSPEPSIA
     Dates: start: 2003
  6. TUMS [Concomitant]
     Dosage: OTC
  7. ALKA SELTZER [Concomitant]
     Dates: start: 1980
  8. WELLBUTRIN [Concomitant]
     Dates: start: 20070718
  9. ALPRAZOLAM [Concomitant]
     Dates: start: 20070718

REACTIONS (7)
  - Spinal fracture [Unknown]
  - Osteoporosis [Unknown]
  - Bone disorder [Unknown]
  - Foot fracture [Unknown]
  - Calcium deficiency [Unknown]
  - Arthritis [Unknown]
  - Tendonitis [Unknown]
